FAERS Safety Report 17343695 (Version 1)
Quarter: 2020Q1

REPORT INFORMATION
  Report Type: Spontaneous
  Country: US (occurrence: US)
  Receive Date: 20200129
  Receipt Date: 20200129
  Transmission Date: 20200409
  Serious: No
  Sender: FDA-Public Use
  Company Number: US-ALLERGAN-1938448US

PATIENT
  Age: 39 Year
  Sex: Female

DRUGS (12)
  1. BOTOX COSMETIC [Suspect]
     Active Substance: ONABOTULINUMTOXINA
     Dosage: 7 UNITS, SINGLE
     Route: 065
     Dates: start: 20190703, end: 20190703
  2. BOTOX COSMETIC [Suspect]
     Active Substance: ONABOTULINUMTOXINA
     Dosage: 5 UNITS, SINGLE
     Route: 065
     Dates: start: 20190703, end: 20190703
  3. BOTOX COSMETIC [Suspect]
     Active Substance: ONABOTULINUMTOXINA
     Dosage: 5 UNITS, SINGLE
     Route: 065
     Dates: start: 20190703, end: 20190703
  4. BOTOX COSMETIC [Suspect]
     Active Substance: ONABOTULINUMTOXINA
     Dosage: 4 UNITS, SINGLE
     Route: 065
     Dates: start: 20190801, end: 20190801
  5. BOTOX COSMETIC [Suspect]
     Active Substance: ONABOTULINUMTOXINA
     Dosage: 10 UNITS, SINGLE
     Route: 065
     Dates: start: 20190801, end: 20190801
  6. BOTOX COSMETIC [Suspect]
     Active Substance: ONABOTULINUMTOXINA
     Dosage: 7 UNITS, SINGLE
     Route: 065
     Dates: start: 20190703, end: 20190703
  7. BOTOX COSMETIC [Suspect]
     Active Substance: ONABOTULINUMTOXINA
     Dosage: 6 UNITS, SINGLE
     Route: 065
     Dates: start: 20190703, end: 20190703
  8. BOTOX COSMETIC [Suspect]
     Active Substance: ONABOTULINUMTOXINA
     Dosage: 6 UNITS, SINGLE
     Route: 065
     Dates: start: 20190703, end: 20190703
  9. BOTOX COSMETIC [Suspect]
     Active Substance: ONABOTULINUMTOXINA
     Indication: HEADACHE
     Dosage: 5 UNITS, SINGLE
     Route: 065
     Dates: start: 20190801, end: 20190801
  10. BOTOX COSMETIC [Suspect]
     Active Substance: ONABOTULINUMTOXINA
     Indication: FACIAL ASYMMETRY
     Dosage: 4 UNITS, SINGLE
     Route: 065
     Dates: start: 20190801, end: 20190801
  11. BOTOX COSMETIC [Suspect]
     Active Substance: ONABOTULINUMTOXINA
     Dosage: 10 UNITS, SINGLE
     Route: 065
     Dates: start: 20190801, end: 20190801
  12. BOTOX COSMETIC [Suspect]
     Active Substance: ONABOTULINUMTOXINA
     Dosage: 6 UNITS, SINGLE
     Route: 065
     Dates: start: 20190801, end: 20190801

REACTIONS (3)
  - Drug ineffective for unapproved indication [Unknown]
  - Product preparation error [Unknown]
  - Off label use [Unknown]

NARRATIVE: CASE EVENT DATE: 2019
